FAERS Safety Report 13141956 (Version 1)
Quarter: 2017Q1

REPORT INFORMATION
  Report Type: Spontaneous
  Country: US (occurrence: US)
  Receive Date: 20170123
  Receipt Date: 20170123
  Transmission Date: 20170428
  Serious: Yes (Life-Threatening, Hospitalization)
  Sender: FDA-Public Use
  Company Number: None

PATIENT
  Age: 75 Year
  Sex: Female
  Weight: 84.8 kg

DRUGS (20)
  1. MECLIZINE (ANTIVERT) [Concomitant]
  2. LASIX [Concomitant]
     Active Substance: FUROSEMIDE
  3. DORZOLAMIDE (TRUSOPT) [Concomitant]
  4. SINGULAIR [Concomitant]
     Active Substance: MONTELUKAST SODIUM
  5. POTASSIUM CHLORIDE (KLOR-CON M) [Concomitant]
  6. PRILOSEC [Concomitant]
     Active Substance: OMEPRAZOLE MAGNESIUM
  7. ELIQUIS [Suspect]
     Active Substance: APIXABAN
     Indication: ATRIAL FIBRILLATION
     Route: 048
  8. ASPIRIN. [Concomitant]
     Active Substance: ASPIRIN
  9. CLOTRIMAZOLE (LOTRIMIN) [Concomitant]
  10. CALCIUM CARB-CHOLECALCIFEROL (CALCIUM + D3) [Concomitant]
  11. HEPARIN [Suspect]
     Active Substance: HEPARIN SODIUM
     Indication: ACUTE CORONARY SYNDROME
     Dosage: ?          OTHER FREQUENCY:PER HOUR;?
     Route: 041
     Dates: start: 20170120, end: 20170121
  12. POLYETHYL GLYCOL-PROPYL GLYCOL (SYSTANE) [Concomitant]
  13. OXYCODONE-ACETAMINOPHEN (PERCOCET) [Concomitant]
  14. BRIMONIDINE (ALPHAGAN) [Concomitant]
  15. DELTASONE [Concomitant]
     Active Substance: PREDNISONE
  16. METOPROLOL TARTRATE (LOPRESSOR) [Concomitant]
  17. CARTIA XT [Concomitant]
     Active Substance: DILTIAZEM HYDROCHLORIDE
  18. FLUOROMETHOLONE (FML) [Concomitant]
  19. MULTIPLE VITAMIN [Concomitant]
     Active Substance: VITAMINS
  20. TIKOSYN [Concomitant]
     Active Substance: DOFETILIDE

REACTIONS (3)
  - Atrial flutter [None]
  - Thrombosis [None]
  - Chest pain [None]

NARRATIVE: CASE EVENT DATE: 20170121
